FAERS Safety Report 26170672 (Version 1)
Quarter: 2025Q4

REPORT INFORMATION
  Report Type: Spontaneous
  Country: US (occurrence: None)
  Receive Date: 20251217
  Receipt Date: 20251217
  Transmission Date: 20260118
  Serious: Yes (Hospitalization)
  Sender: FDA-CTU
  Company Number: None

PATIENT
  Sex: Female

DRUGS (2)
  1. OPSUMIT [Suspect]
     Active Substance: MACITENTAN
     Indication: Pulmonary arterial hypertension
     Dosage: 10 MG DAILY ORAL
     Route: 048
     Dates: start: 20190125
  2. UPTRAVI [Suspect]
     Active Substance: SELEXIPAG

REACTIONS (4)
  - Cerebrovascular accident [None]
  - Seizure [None]
  - Therapy interrupted [None]
  - Oxygen saturation decreased [None]
